FAERS Safety Report 5284210-X (Version None)
Quarter: 2007Q1

REPORT INFORMATION
  Report Type: 
  Country: None (occurrence: None)
  Receive Date: 20070330
  Receipt Date: 20070330
  Transmission Date: 20070707
  Serious: Yes (Hospitalization)
  Sender: FDA-Public Use
  Company Number: None

PATIENT
  Age: 72 Year
  Sex: Female
  Weight: 68.7 kg

DRUGS (3)
  1. ERLOTINIB [Suspect]
     Dosage: 75 MG PO QD
     Route: 048
     Dates: start: 20070214
  2. VINFLUNINE [Suspect]
     Indication: SALIVARY GLAND CANCER
     Dosage: 250 MG/M2, IV Q 21 DAYS
     Route: 042
     Dates: start: 20070213
  3. VINFLUNINE [Suspect]
     Indication: SALIVARY GLAND CANCER
     Dosage: 250 MG/M2, IV Q 21 DAYS
     Route: 042
     Dates: start: 20070306

REACTIONS (8)
  - ANOREXIA [None]
  - BLOOD SODIUM DECREASED [None]
  - EYE INFECTION [None]
  - FATIGUE [None]
  - NAUSEA [None]
  - ORAL DISCOMFORT [None]
  - STAPHYLOCOCCAL INFECTION [None]
  - VOMITING [None]
